FAERS Safety Report 4445247-3 (Version None)
Quarter: 2004Q3

REPORT INFORMATION
  Report Type: 
  Country: None (occurrence: None)
  Receive Date: 20040902
  Receipt Date: 20040819
  Transmission Date: 20050211
  Serious: Yes (Hospitalization)
  Sender: FDA-Public Use
  Company Number: CERZ-10637

PATIENT
  Age: 57 Year
  Sex: Female
  Weight: 62.3 kg

DRUGS (2)
  1. CEREZYME [Suspect]
     Indication: GAUCHER'S DISEASE
     Dosage: 1800 UNITS Q4WKS IV
     Route: 042
     Dates: start: 19951201
  2. CEREZYME [Suspect]
     Indication: GAUCHER'S DISEASE
     Dosage: 2000 UNIT Q4WKS IV
     Route: 042
     Dates: start: 19951201

REACTIONS (1)
  - INGUINAL HERNIA [None]
